FAERS Safety Report 14420314 (Version 1)
Quarter: 2018Q1

REPORT INFORMATION
  Report Type: Spontaneous
  Country: US (occurrence: US)
  Receive Date: 20180122
  Receipt Date: 20180122
  Transmission Date: 20180509
  Serious: No
  Sender: FDA-Public Use
  Company Number: US-ROCHE-1891321

PATIENT
  Sex: Female

DRUGS (1)
  1. RITUXAN [Suspect]
     Active Substance: RITUXIMAB
     Indication: RHEUMATOID ARTHRITIS
     Dosage: 1000MG DAY ZERO REPEAT DAY15, REPEAT EVERY 4MONTHS
     Route: 041
     Dates: start: 20150904

REACTIONS (1)
  - Blood glucose increased [Not Recovered/Not Resolved]
